FAERS Safety Report 5671643-2 (Version None)
Quarter: 2008Q1

REPORT INFORMATION
  Report Type: 
  Country: None (occurrence: None)
  Receive Date: 20080318
  Receipt Date: 20080311
  Transmission Date: 20080703
  Serious: Yes (Other)
  Sender: FDA-Public Use
  Company Number: BR-ALLERGAN-0803012US

PATIENT
  Sex: Female

DRUGS (3)
  1. RELESTAT [Suspect]
     Indication: CONJUNCTIVITIS ALLERGIC
     Dosage: 1 GTT, BID
     Route: 047
     Dates: start: 20080306
  2. PATANOL [Suspect]
     Indication: CONJUNCTIVITIS ALLERGIC
     Route: 047
  3. FRESH TEARS [Concomitant]
     Indication: DRUG USE FOR UNKNOWN INDICATION
     Route: 047

REACTIONS (2)
  - HERNIA [None]
  - RASH [None]
